FAERS Safety Report 7345481-9 (Version None)
Quarter: 2011Q1

REPORT INFORMATION
  Report Type: 
  Country: None (occurrence: None)
  Receive Date: 20110310
  Receipt Date: 20110304
  Transmission Date: 20110831
  Serious: Yes (Other)
  Sender: FDA-Public Use
  Company Number: HR-ABBOTT-11P-216-0708983-00

PATIENT
  Sex: Female

DRUGS (4)
  1. METHOTREXATE [Concomitant]
     Indication: RHEUMATOID ARTHRITIS
  2. MEDROL [Concomitant]
     Indication: RHEUMATOID ARTHRITIS
  3. HUMIRA [Suspect]
     Indication: RHEUMATOID ARTHRITIS
     Dates: start: 20101201, end: 20110220
  4. ARAVA [Concomitant]
     Indication: RHEUMATOID ARTHRITIS

REACTIONS (6)
  - DERMATITIS EXFOLIATIVE [None]
  - CELLULITIS [None]
  - ERYTHEMA [None]
  - PARAESTHESIA [None]
  - SKIN MASS [None]
  - PRURITUS [None]
